FAERS Safety Report 4844846-4 (Version None)
Quarter: 2005Q4

REPORT INFORMATION
  Report Type: 
  Country: None (occurrence: None)
  Receive Date: 20051201
  Receipt Date: 20051201
  Transmission Date: 20060501
  Serious: Yes (Hospitalization)
  Sender: FDA-Public Use
  Company Number: None

PATIENT
  Age: 43 Year
  Sex: Female
  Weight: 106 kg

DRUGS (4)
  1. ERBTIUX [Suspect]
     Indication: TONGUE NEOPLASM MALIGNANT STAGE UNSPECIFIED
     Dosage: 250MG/M2  ONCE/ WEEK IV
     Route: 042
     Dates: start: 20051010, end: 20051128
  2. CARBOPLATIN [Suspect]
  3. PACLITAXEL [Suspect]
  4. RADIATION THERAPY [Suspect]

REACTIONS (10)
  - DIPLOPIA [None]
  - GAIT DISTURBANCE [None]
  - MALAISE [None]
  - MENINGITIS [None]
  - NAUSEA [None]
  - OXYGEN SATURATION DECREASED [None]
  - PNEUMONITIS [None]
  - PYREXIA [None]
  - RESPIRATORY DISTRESS [None]
  - VOMITING [None]
